FAERS Safety Report 6268269-9 (Version None)
Quarter: 2009Q3

REPORT INFORMATION
  Report Type: 
  Country: None (occurrence: None)
  Receive Date: 20090715
  Receipt Date: 20090707
  Transmission Date: 20100115
  Serious: Yes (Other)
  Sender: FDA-Public Use
  Company Number: ZA-JNJFOC-20090702305

PATIENT
  Sex: Male

DRUGS (4)
  1. RISPERDAL [Suspect]
     Route: 065
  2. RISPERDAL [Suspect]
     Indication: ANXIETY
     Route: 065
  3. CIPRALEX [Suspect]
     Indication: DEPRESSION
     Route: 065
  4. EFFEXOR [Suspect]
     Indication: DEPRESSION
     Route: 065

REACTIONS (4)
  - DRY MOUTH [None]
  - INFLUENZA [None]
  - SALIVARY GLAND CALCULUS [None]
  - SALIVARY GLAND DISORDER [None]
